FAERS Safety Report 9230250 (Version 2)
Quarter: 2013Q2

REPORT INFORMATION
  Report Type: Spontaneous
  Country: US (occurrence: None)
  Receive Date: 20130411
  Receipt Date: 20130418
  Transmission Date: 20140414
  Serious: Yes (Life-Threatening, Hospitalization, Other)
  Sender: FDA-Public Use
  Company Number: ADR-2013-00613

PATIENT
  Age: 59 Year
  Sex: Male

DRUGS (3)
  1. BACLOFEN INTRATHECAL [Suspect]
     Indication: PAIN
  2. BUPIVACAINE, MORPHINE [Concomitant]
  3. ORAL NARCOTICS [Concomitant]

REACTIONS (6)
  - Meningitis [None]
  - Bacteraemia [None]
  - Product contamination [None]
  - Drug withdrawal syndrome [None]
  - Device occlusion [None]
  - Device failure [None]
